FAERS Safety Report 14599128 (Version 1)
Quarter: 2018Q1

REPORT INFORMATION
  Report Type: Spontaneous
  Country: US (occurrence: US)
  Receive Date: 20180303
  Receipt Date: 20180303
  Transmission Date: 20180509
  Serious: Yes (Other)
  Sender: FDA-Public Use
  Company Number: None

PATIENT
  Age: 6 Year
  Sex: Male
  Weight: 24 kg

DRUGS (2)
  1. VYVANSE [Suspect]
     Active Substance: LISDEXAMFETAMINE DIMESYLATE
     Indication: ATTENTION DEFICIT/HYPERACTIVITY DISORDER
     Dosage: ?          QUANTITY:1 CAPSULE(S);?
     Route: 048
     Dates: start: 20180301
  2. ALBUTEROL. [Concomitant]
     Active Substance: ALBUTEROL

REACTIONS (13)
  - Pain in extremity [None]
  - Attention deficit/hyperactivity disorder [None]
  - Speech disorder [None]
  - Abnormal behaviour [None]
  - Crying [None]
  - Anger [None]
  - Memory impairment [None]
  - Condition aggravated [None]
  - Vomiting [None]
  - Poor quality sleep [None]
  - Chest pain [None]
  - Aphonia [None]
  - Mood altered [None]

NARRATIVE: CASE EVENT DATE: 20180301
